FAERS Safety Report 25738612 (Version 1)
Quarter: 2025Q3

REPORT INFORMATION
  Report Type: Spontaneous
  Country: US (occurrence: US)
  Receive Date: 20250829
  Receipt Date: 20250829
  Transmission Date: 20251020
  Serious: No
  Sender: MDD OPERATIONS
  Company Number: US-MDD US Operations-MDD202506-001991

PATIENT
  Age: 73 Year
  Sex: Male

DRUGS (2)
  1. ONAPGO [Suspect]
     Active Substance: APOMORPHINE HYDROCHLORIDE
     Indication: Parkinson^s disease
     Dates: start: 20250602
  2. ONAPGO [Suspect]
     Active Substance: APOMORPHINE HYDROCHLORIDE
     Dates: start: 202506

REACTIONS (3)
  - Drooling [Not Recovered/Not Resolved]
  - Musculoskeletal stiffness [Not Recovered/Not Resolved]
  - Somnolence [Unknown]

NARRATIVE: CASE EVENT DATE: 20250601
